FAERS Safety Report 5754710-4 (Version None)
Quarter: 2008Q2

REPORT INFORMATION
  Report Type: 
  Country: None (occurrence: None)
  Receive Date: 20080527
  Receipt Date: 20080507
  Transmission Date: 20081010
  Serious: Yes (Hospitalization)
  Sender: FDA-Public Use
  Company Number: 2008AL003890

PATIENT
  Age: 67 Year
  Sex: Male
  Weight: 136.0791 kg

DRUGS (1)
  1. DIGOXIN [Suspect]
     Indication: CARDIAC DISORDER
     Dosage: 0.125 MG DAILY PO, A WHILE
     Route: 048

REACTIONS (5)
  - ABASIA [None]
  - CARDIOACTIVE DRUG LEVEL INCREASED [None]
  - DIZZINESS [None]
  - OEDEMA PERIPHERAL [None]
  - PALPITATIONS [None]
